FAERS Safety Report 23066727 (Version 1)
Quarter: 2023Q4

REPORT INFORMATION
  Report Type: Spontaneous
  Country: US (occurrence: US)
  Receive Date: 20231016
  Receipt Date: 20231016
  Transmission Date: 20240110
  Serious: Yes (Hospitalization, Other)
  Sender: FDA-Public Use
  Company Number: US-BAXTER-2023BAX032807

PATIENT
  Sex: Male
  Weight: 85.5 kg

DRUGS (2)
  1. EXTRANEAL [Suspect]
     Active Substance: CALCIUM CHLORIDE\ICODEXTRIN\MAGNESIUM CHLORIDE\SODIUM CHLORIDE\SODIUM LACTATE
     Route: 033
  2. CLONIDINE [Suspect]
     Active Substance: CLONIDINE
     Route: 065

REACTIONS (5)
  - Peritoneal dialysis complication [Recovered/Resolved]
  - Pneumonia [Recovered/Resolved]
  - Pulmonary amyloidosis [Recovered/Resolved]
  - Dizziness [Recovered/Resolved]
  - Hypotension [Recovered/Resolved]
